FAERS Safety Report 17713182 (Version 1)
Quarter: 2020Q2

REPORT INFORMATION
  Report Type: Spontaneous
  Country: US (occurrence: US)
  Receive Date: 20200427
  Receipt Date: 20200427
  Transmission Date: 20200714
  Serious: Yes (Disabling)
  Sender: FDA-Public Use
  Company Number: None

PATIENT
  Age: 83 Year
  Sex: Female
  Weight: 67.5 kg

DRUGS (1)
  1. BEOVU [Suspect]
     Active Substance: BROLUCIZUMAB-DBLL
     Indication: NEOVASCULAR AGE-RELATED MACULAR DEGENERATION
     Dosage: ?          OTHER FREQUENCY:Q 4 WEEKS;?
     Route: 031
     Dates: start: 20200225, end: 20200417

REACTIONS (4)
  - Blindness [None]
  - Uveitis [None]
  - Retinitis [None]
  - Retinal haemorrhage [None]

NARRATIVE: CASE EVENT DATE: 20200425
